FAERS Safety Report 9704622 (Version 2)
Quarter: 2014Q1

REPORT INFORMATION
  Report Type: Spontaneous
  Country: US (occurrence: US)
  Receive Date: 20131122
  Receipt Date: 20140129
  Transmission Date: 20141002
  Serious: Yes (Other)
  Sender: FDA-Public Use
  Company Number: US-B.I. PHARMACEUTICALS,INC./RIDGEFIELD-2013-BI-37760BP

PATIENT
  Age: 47 Year
  Sex: Female
  Weight: 104.46 kg

DRUGS (5)
  1. PRADAXA [Suspect]
     Indication: ATRIAL FIBRILLATION
     Dosage: 300 MG
     Route: 048
     Dates: start: 20130624, end: 20130919
  2. DILTIAZEM ER [Concomitant]
     Indication: ATRIAL FIBRILLATION
     Dosage: 360 MG
     Dates: start: 20130620
  3. LASIX [Concomitant]
     Dosage: 40 MG
  4. COUMADIN [Concomitant]
  5. LIPITOR [Concomitant]
     Indication: CEREBROVASCULAR ACCIDENT
     Dosage: 80 MG

REACTIONS (1)
  - Atrial thrombosis [Recovered/Resolved]
